FAERS Safety Report 14199876 (Version 2)
Quarter: 2017Q4

REPORT INFORMATION
  Report Type: Spontaneous
  Country: US (occurrence: US)
  Receive Date: 20171117
  Receipt Date: 20171212
  Transmission Date: 20180321
  Serious: Yes (Other)
  Sender: FDA-Public Use
  Company Number: US-ENDO PHARMACEUTICALS INC-2017-006321

PATIENT
  Age: 55 Year
  Sex: Male
  Weight: 68.03 kg

DRUGS (2)
  1. XIAFLEX [Suspect]
     Active Substance: COLLAGENASE CLOSTRIDIUM HISTOLYTICUM
     Indication: DUPUYTREN^S CONTRACTURE
     Dosage: UNKNOWN, 1 INJECTION IN CORD OF LEFT HAND LITTLE FINGER, SINGLE
     Route: 026
     Dates: start: 20171017, end: 20171017
  2. LISINOPRIL. [Concomitant]
     Active Substance: LISINOPRIL
     Indication: BLOOD PRESSURE ABNORMAL
     Dosage: 10 MG, DAILY
     Route: 048

REACTIONS (4)
  - Ligament operation [Recovered/Resolved]
  - Tendon rupture [Recovering/Resolving]
  - Tendon operation [Recovered/Resolved]
  - Ligament rupture [Recovering/Resolving]

NARRATIVE: CASE EVENT DATE: 20171018
